FAERS Safety Report 20432602 (Version 1)
Quarter: 2022Q1

REPORT INFORMATION
  Report Type: Spontaneous
  Country: CN (occurrence: CN)
  Receive Date: 20220204
  Receipt Date: 20220204
  Transmission Date: 20220423
  Serious: Yes (Hospitalization, Other)
  Sender: FDA-Public Use
  Company Number: CN-009507513-2201CHN008744

PATIENT
  Age: 88 Year
  Sex: Female
  Weight: 68 kg

DRUGS (2)
  1. CILASTATIN SODIUM\IMIPENEM [Suspect]
     Active Substance: CILASTATIN SODIUM\IMIPENEM
     Indication: Pneumonia
     Dosage: 1 G, Q8H (ALSO REPORTED AS THREE TIMES A DAY), IV DRIP, INDICATION ALSO REPORTED AS ANTI INFECTIVE T
     Route: 041
     Dates: start: 20220117, end: 20220123
  2. SODIUM CHLORIDE [Concomitant]
     Active Substance: SODIUM CHLORIDE
     Indication: Medication dilution
     Dosage: 100 ML, THREE TIMES A DAY, IV DRIP
     Route: 041
     Dates: start: 20220117, end: 20220123

REACTIONS (5)
  - Epilepsy [Recovering/Resolving]
  - Diabetes mellitus [Unknown]
  - Pneumonia [Unknown]
  - Cardiac disorder [Unknown]
  - Cerebrovascular disorder [Unknown]

NARRATIVE: CASE EVENT DATE: 20220117
